FAERS Safety Report 8930186 (Version 1)
Quarter: 2012Q4

REPORT INFORMATION
  Report Type: 
  Country: US (occurrence: US)
  Receive Date: 20121128
  Receipt Date: 20121128
  Transmission Date: 20130627
  Serious: Yes (Life-Threatening, Congenital Anomaly, Other)
  Sender: FDA-Public Use
  Company Number: US-ELI_LILLY_AND_COMPANY-US201211005365

PATIENT

DRUGS (1)
  1. PROZAC [Suspect]
     Dosage: 1 DF, unknown
     Route: 064

REACTIONS (8)
  - Pulmonary malformation [Unknown]
  - Cerebral haemorrhage neonatal [Unknown]
  - Congenital cardiovascular anomaly [Unknown]
  - Sleep apnoea syndrome [Unknown]
  - Cardiac murmur [Unknown]
  - Hernia congenital [Unknown]
  - Premature baby [Unknown]
  - Foetal exposure during pregnancy [Recovered/Resolved]
